FAERS Safety Report 8444125-2 (Version None)
Quarter: 2012Q2

REPORT INFORMATION
  Report Type: 
  Country: None (occurrence: None)
  Receive Date: 20120618
  Receipt Date: 20120606
  Transmission Date: 20120825
  Serious: Yes (Hospitalization, Other)
  Sender: FDA-Public Use
  Company Number: CA-BRISTOL-MYERS SQUIBB COMPANY-16572547

PATIENT
  Age: 70 Year
  Sex: Male
  Weight: 108 kg

DRUGS (9)
  1. ATORVASTATIN CALCIUM [Concomitant]
     Indication: DYSLIPIDAEMIA
  2. METOPROLOL SUCCINATE [Concomitant]
     Indication: ANGINA PECTORIS
  3. IRBESARTAN [Concomitant]
     Indication: HYPERTENSION
     Dosage: 150UNITS NOS
  4. GLYBURIDE [Concomitant]
     Indication: DIABETES MELLITUS
     Dosage: 5MG OD
  5. NOVOLIN N [Concomitant]
     Dosage: 30UNITS
     Route: 058
  6. METFORMIN HCL [Concomitant]
     Indication: DIABETES MELLITUS
     Dosage: 850UNITS NOS BID
  7. ONGLYZA [Suspect]
     Indication: TYPE 2 DIABETES MELLITUS
     Route: 048
  8. ASPIRIN [Concomitant]
  9. NIASPAN [Concomitant]
     Dosage: 500UNITS NOS

REACTIONS (7)
  - GASTROINTESTINAL DISORDER [None]
  - DEHYDRATION [None]
  - DECREASED APPETITE [None]
  - RASH PAPULAR [None]
  - PRURIGO [None]
  - RASH PRURITIC [None]
  - WEIGHT DECREASED [None]
